FAERS Safety Report 6963962 (Version 3)
Quarter: 2012Q4

REPORT INFORMATION
  Report Type: 
  Country: US (occurrence: US)
  Receive Date: 20090408
  Receipt Date: 20121109
  Transmission Date: 20130627
  Serious: Yes (Other)
  Sender: FDA-Public Use
  Company Number: US-ASTRAZENECA-2009UW08145

PATIENT
  Age: 72 Year
  Sex: Female
  Weight: 72.6 kg

DRUGS (6)
  1. ARIMIDEX [Suspect]
     Indication: BREAST CANCER
     Route: 048
     Dates: start: 20090212, end: 201002
  2. ARIMIDEX [Suspect]
     Indication: BREAST CANCER
     Dosage: GENERIC, 1 MG ONCE
     Route: 048
     Dates: start: 201002
  3. CRESTOR [Suspect]
     Indication: BLOOD CHOLESTEROL INCREASED
     Dosage: DAILY
     Route: 048
  4. BABY ASA [Concomitant]
     Dosage: DAILY
     Route: 048
  5. DIOVAN [Concomitant]
     Dosage: DAILY
     Route: 048
  6. LOSARTAN HCT [Concomitant]
     Dosage: 50/12.5 MG DAILY
     Route: 048
     Dates: start: 2009

REACTIONS (10)
  - Ocular vasculitis [Not Recovered/Not Resolved]
  - Chest pain [Not Recovered/Not Resolved]
  - Dyspnoea [Not Recovered/Not Resolved]
  - Fluid retention [Not Recovered/Not Resolved]
  - Angina pectoris [Not Recovered/Not Resolved]
  - Dysphagia [Not Recovered/Not Resolved]
  - Breast pain [Unknown]
  - Libido increased [Unknown]
  - Weight increased [Unknown]
  - Fatigue [Not Recovered/Not Resolved]
